FAERS Safety Report 9648620 (Version 2)
Quarter: 2013Q4

REPORT INFORMATION
  Report Type: Spontaneous
  Country: US (occurrence: US)
  Receive Date: 20131028
  Receipt Date: 20131111
  Transmission Date: 20140711
  Serious: No
  Sender: FDA-Public Use
  Company Number: US-PFIZER INC-2013302985

PATIENT
  Age: 83 Year
  Sex: Female

DRUGS (11)
  1. ZITHROMAX [Suspect]
     Dosage: UNK
  2. CODEINE PHOSPHATE [Suspect]
     Dosage: UNK
  3. DIFLUCAN [Suspect]
     Dosage: UNK
  4. PREDNISONE [Suspect]
     Dosage: UNK
  5. ASPIRIN ^BAYER^ [Suspect]
     Dosage: UNK
  6. AUGMENTIN [Suspect]
     Dosage: UNK
  7. KEFLEX [Suspect]
     Dosage: UNK
  8. CIPRO [Suspect]
     Dosage: UNK
  9. REGLAN [Suspect]
     Dosage: UNK
  10. MONISTAT [Suspect]
     Dosage: UNK
  11. ZEGERID [Suspect]
     Dosage: UNK

REACTIONS (1)
  - Drug hypersensitivity [Unknown]
